FAERS Safety Report 7281871-0 (Version None)
Quarter: 2011Q1

REPORT INFORMATION
  Report Type: 
  Country: None (occurrence: None)
  Receive Date: 20110208
  Receipt Date: 20110204
  Transmission Date: 20110831
  Serious: Yes (Hospitalization, Other)
  Sender: FDA-Public Use
  Company Number: JP-PFIZER INC-2011010651

PATIENT
  Age: 52 Year
  Sex: Male

DRUGS (3)
  1. CLEMASTINE FUMARATE [Concomitant]
     Dosage: UNK
     Route: 048
  2. CALONAL [Concomitant]
     Dosage: UNK
  3. LYRICA [Suspect]
     Dosage: UNK
     Route: 048
     Dates: end: 20101123

REACTIONS (5)
  - ALANINE AMINOTRANSFERASE INCREASED [None]
  - LIVER DISORDER [None]
  - BLOOD ALKALINE PHOSPHATASE INCREASED [None]
  - BLOOD BILIRUBIN INCREASED [None]
  - ASPARTATE AMINOTRANSFERASE INCREASED [None]
